FAERS Safety Report 12293982 (Version 3)
Quarter: 2016Q3

REPORT INFORMATION
  Report Type: Report from Study
  Country: AU (occurrence: AU)
  Receive Date: 20160422
  Receipt Date: 20160830
  Transmission Date: 20161109
  Serious: Yes (Other)
  Sender: FDA-Public Use
  Company Number: AU-BRISTOL-MYERS SQUIBB COMPANY-BMS-2015-005160

PATIENT
  Sex: Male

DRUGS (1)
  1. DASATINIB [Suspect]
     Active Substance: DASATINIB
     Indication: CHRONIC MYELOID LEUKAEMIA
     Dosage: 100 MG, EVERY SECOND DAY
     Route: 048
     Dates: start: 20141001

REACTIONS (11)
  - Pain [Not Recovered/Not Resolved]
  - Platelet count decreased [Unknown]
  - Cough [Unknown]
  - Therapeutic response decreased [Recovered/Resolved]
  - Feeling cold [Not Recovered/Not Resolved]
  - Off label use [Unknown]
  - Heart rate irregular [Unknown]
  - Bile duct stone [Recovered/Resolved]
  - Tinnitus [Not Recovered/Not Resolved]
  - Dyspnoea [Not Recovered/Not Resolved]
  - Oedema [Unknown]
